FAERS Safety Report 12296316 (Version 1)
Quarter: 2016Q2

REPORT INFORMATION
  Report Type: Report from Study
  Country: CA (occurrence: CA)
  Receive Date: 20160422
  Receipt Date: 20160422
  Transmission Date: 20160815
  Serious: Yes (Other)
  Sender: FDA-Public Use
  Company Number: CA-JNJFOC-20160418794

PATIENT
  Age: 64 Year
  Sex: Female
  Weight: 52.62 kg

DRUGS (1)
  1. SIMPONI [Suspect]
     Active Substance: GOLIMUMAB
     Indication: PSORIATIC ARTHROPATHY
     Route: 058
     Dates: start: 20150130

REACTIONS (2)
  - Bladder neoplasm [Unknown]
  - Intestinal resection [Unknown]

NARRATIVE: CASE EVENT DATE: 20160406
